FAERS Safety Report 4728610-2 (Version None)
Quarter: 2005Q3

REPORT INFORMATION
  Report Type: 
  Country: None (occurrence: None)
  Receive Date: 20050721
  Receipt Date: 20050505
  Transmission Date: 20060218
  Serious: No
  Sender: FDA-Public Use
  Company Number: 2005SP000584

PATIENT
  Age: 35 Year
  Sex: Female

DRUGS (1)
  1. LUNESTA [Suspect]
     Indication: INSOMNIA
     Dosage: 3 MG; HS; ORAL
     Route: 048
     Dates: start: 20050410

REACTIONS (5)
  - ALOPECIA [None]
  - DYSGEUSIA [None]
  - FATIGUE [None]
  - INCREASED APPETITE [None]
  - MIDDLE INSOMNIA [None]
